FAERS Safety Report 17786119 (Version 2)
Quarter: 2020Q2

REPORT INFORMATION
  Report Type: Report from Study
  Country: None (occurrence: US)
  Receive Date: 20200513
  Receipt Date: 20200522
  Transmission Date: 20200714
  Serious: Yes (Hospitalization)
  Sender: FDA-Public Use
  Company Number: GB-ABBVIE-20K-167-3393686-00

PATIENT
  Age: 15 Year
  Sex: Female
  Weight: 71.5 kg

DRUGS (8)
  1. HUMIRA [Suspect]
     Active Substance: ADALIMUMAB
     Dosage: ONE OFF DOSE , LOADING DOSE
     Route: 058
     Dates: start: 20190822, end: 20190822
  2. HUMIRA [Suspect]
     Active Substance: ADALIMUMAB
     Dosage: ONE OFF DOSE , LOADING DOSE
     Route: 058
     Dates: start: 20191105
  3. CALCICHEW D3 FORTE [Concomitant]
     Active Substance: CALCIUM\CHOLECALCIFEROL
     Indication: BONE DISORDER
     Route: 048
     Dates: start: 201810
  4. HUMIRA [Suspect]
     Active Substance: ADALIMUMAB
     Indication: CROHN^S DISEASE
     Route: 058
     Dates: start: 20141223, end: 20180116
  5. METHOTREXATE. [Suspect]
     Active Substance: METHOTREXATE
     Route: 048
     Dates: start: 20171207, end: 20180418
  6. HUMIRA [Suspect]
     Active Substance: ADALIMUMAB
     Route: 058
     Dates: start: 20180116, end: 20180628
  7. METHOTREXATE. [Suspect]
     Active Substance: METHOTREXATE
     Indication: CROHN^S DISEASE
     Route: 048
     Dates: start: 20150116, end: 20151206
  8. HUMIRA [Suspect]
     Active Substance: ADALIMUMAB
     Dosage: ONE OFF DOSE , LOADING DOSE
     Route: 058
     Dates: start: 20191008, end: 20191008

REACTIONS (1)
  - Small intestinal obstruction [Recovered/Resolved]

NARRATIVE: CASE EVENT DATE: 20200201
